FAERS Safety Report 9922607 (Version 4)
Quarter: 2014Q2

REPORT INFORMATION
  Report Type: Spontaneous
  Country: US (occurrence: US)
  Receive Date: 20140225
  Receipt Date: 20140411
  Transmission Date: 20141212
  Serious: Yes (Hospitalization, Other)
  Sender: FDA-Public Use
  Company Number: US-TEVA-463898USA

PATIENT
  Sex: Male
  Weight: 181.15 kg

DRUGS (7)
  1. ACTIQ [Suspect]
     Indication: TRIGEMINAL NEURALGIA
  2. OPANA [Interacting]
     Indication: PAIN
     Dosage: 40 MILLIGRAM DAILY;
  3. SERZONE [Interacting]
     Indication: DEPRESSION
     Dosage: 75 MILLIGRAM DAILY;
  4. EXALGO [Suspect]
  5. FENTANYL PATCH [Suspect]
     Indication: PAIN
     Dosage: 8.3333 MICROGRAM DAILY;
     Route: 062
     Dates: start: 201311
  6. TIAZAC [Concomitant]
     Indication: HYPERTENSION
     Dosage: 180 MILLIGRAM DAILY;
  7. ASPIRIN [Concomitant]
     Indication: PRODUCT USED FOR UNKNOWN INDICATION
     Dosage: 81 MILLIGRAM DAILY;

REACTIONS (43)
  - Suicidal ideation [Recovered/Resolved]
  - Blindness transient [Not Recovered/Not Resolved]
  - Brain oedema [Unknown]
  - Nephrolithiasis [Recovered/Resolved]
  - Loss of consciousness [Not Recovered/Not Resolved]
  - Mobility decreased [Unknown]
  - Loss of consciousness [Unknown]
  - Drug interaction [Recovered/Resolved]
  - Drug withdrawal syndrome [Unknown]
  - Trigeminal neuralgia [Not Recovered/Not Resolved]
  - Trigeminal neuralgia [Not Recovered/Not Resolved]
  - Herpes zoster [Not Recovered/Not Resolved]
  - Tinnitus [Not Recovered/Not Resolved]
  - Pain [Not Recovered/Not Resolved]
  - Toothache [Not Recovered/Not Resolved]
  - Muscle spasms [Not Recovered/Not Resolved]
  - Paraesthesia [Not Recovered/Not Resolved]
  - Drug ineffective [Unknown]
  - Cluster headache [Not Recovered/Not Resolved]
  - Somnolence [Recovered/Resolved]
  - Fall [Recovered/Resolved]
  - Thermal burn [Unknown]
  - Hypoaesthesia oral [Recovered/Resolved]
  - Agitation [Recovered/Resolved]
  - Anxiety [Recovered/Resolved]
  - Heart rate increased [Recovered/Resolved]
  - Dyspnoea [Recovered/Resolved]
  - Euphoric mood [Unknown]
  - Off label use [Unknown]
  - Oral discomfort [Unknown]
  - Dysgeusia [Unknown]
  - Glossodynia [Unknown]
  - Limb injury [Unknown]
  - Stomatitis [Unknown]
  - Herpes zoster [Unknown]
  - Swelling face [Unknown]
  - Tongue biting [Unknown]
  - Ageusia [Unknown]
  - Anosmia [Unknown]
  - Pain [Unknown]
  - Activities of daily living impaired [Unknown]
  - Flashback [Unknown]
  - Dysgeusia [Unknown]
